FAERS Safety Report 6934718-3 (Version None)
Quarter: 2010Q3

REPORT INFORMATION
  Report Type: 
  Country: None (occurrence: None)
  Receive Date: 20100820
  Receipt Date: 20100813
  Transmission Date: 20110219
  Serious: Yes (Hospitalization)
  Sender: FDA-Public Use
  Company Number: FR-MERCK-1008FRA00041

PATIENT
  Age: 38 Year
  Sex: Female

DRUGS (15)
  1. CANCIDAS [Suspect]
     Route: 042
     Dates: end: 20100527
  2. VALPROATE SODIUM [Suspect]
     Indication: EPILEPSY
     Route: 042
     Dates: end: 20100523
  3. VALPROATE SODIUM [Suspect]
     Route: 042
     Dates: start: 20100524
  4. FLUOXETINE [Suspect]
     Route: 048
     Dates: end: 20100527
  5. CEFTAZIDIME [Concomitant]
     Route: 042
     Dates: start: 20100519
  6. MIDAZOLAM [Concomitant]
     Route: 042
  7. SUFENTANIL [Concomitant]
     Route: 042
  8. ACETAMINOPHEN [Concomitant]
     Route: 048
  9. NOREPINEPHRINE [Concomitant]
     Route: 042
  10. CILASTATIN SODIUM AND IMIPENEM [Concomitant]
     Route: 042
     Dates: start: 20100516, end: 20100519
  11. PIPERACILLIN SODIUM AND TAZOBACTAM SODIUM [Concomitant]
     Route: 042
  12. PIPERACILLIN SODIUM AND TAZOBACTAM SODIUM [Concomitant]
     Route: 042
     Dates: start: 20100515, end: 20100515
  13. AMOXICILLIN AND CLAVULANATE POTASSIUM [Concomitant]
     Route: 065
     Dates: start: 20100515, end: 20100515
  14. GENTAMICIN [Concomitant]
     Route: 065
     Dates: start: 20100515, end: 20100515
  15. VANCOMYCIN [Concomitant]
     Route: 065
     Dates: start: 20100516, end: 20100519

REACTIONS (1)
  - CONVULSION [None]
